FAERS Safety Report 4443320-7 (Version None)
Quarter: 2004Q3

REPORT INFORMATION
  Report Type: 
  Country: None (occurrence: None)
  Receive Date: 20040908
  Receipt Date: 20040811
  Transmission Date: 20050211
  Serious: Yes (Hospitalization)
  Sender: FDA-Public Use
  Company Number: 200416056US

PATIENT
  Age: 47 Year
  Sex: Female

DRUGS (6)
  1. ARAVA [Suspect]
     Indication: RHEUMATOID ARTHRITIS
     Route: 048
     Dates: start: 20040801
  2. METHOTREXATE [Concomitant]
     Dosage: DOSE: UNK
  3. VIOXX [Concomitant]
     Dosage: DOSE: UNK
  4. PREDNISONE [Concomitant]
     Dosage: DOSE: UNK
  5. HYPNOTICS AND SEDATIVES [Concomitant]
     Dosage: DOSE: UNK
  6. PROZAC [Concomitant]
     Dosage: DOSE: UNK

REACTIONS (3)
  - ENCEPHALITIS VIRAL [None]
  - MENTAL STATUS CHANGES [None]
  - WEST NILE VIRAL INFECTION [None]
